FAERS Safety Report 7508562-2 (Version None)
Quarter: 2011Q2

REPORT INFORMATION
  Report Type: 
  Country: None (occurrence: None)
  Receive Date: 20110527
  Receipt Date: 20110513
  Transmission Date: 20111010
  Serious: Yes (Other)
  Sender: FDA-Public Use
  Company Number: PT-JNJFOC-20101200566

PATIENT
  Age: 1 Decade
  Sex: Male

DRUGS (2)
  1. REMICADE [Suspect]
     Indication: COLITIS ULCERATIVE
     Route: 042
  2. REMICADE [Suspect]
     Dosage: INDUCTION DOSE, ABOUT 1 YEAR PRIOR TO THIS REPORT
     Route: 042

REACTIONS (7)
  - DYSPNOEA [None]
  - BRONCHOSPASM [None]
  - DRUG INEFFECTIVE [None]
  - STRIDOR [None]
  - COUGH [None]
  - ERYTHEMA [None]
  - INFUSION RELATED REACTION [None]
